FAERS Safety Report 10166512 (Version 1)
Quarter: 2014Q2

REPORT INFORMATION
  Report Type: Spontaneous
  Country: US (occurrence: None)
  Receive Date: 20140509
  Receipt Date: 20140509
  Transmission Date: 20141212
  Serious: Yes (Disabling)
  Sender: FDA-Public Use
  Company Number: None

PATIENT
  Age: 59 Year
  Sex: Male
  Weight: 86.18 kg

DRUGS (1)
  1. WATSON FENTANYL PATCH [Suspect]
     Indication: PAIN
     Dosage: 1/2 PILL/DAY
     Dates: start: 20140307, end: 20140407

REACTIONS (4)
  - Drug dispensing error [None]
  - Depression [None]
  - Vision blurred [None]
  - Inadequate analgesia [None]
